FAERS Safety Report 6069189-5 (Version None)
Quarter: 2009Q1

REPORT INFORMATION
  Report Type: 
  Country: None (occurrence: None)
  Receive Date: 20090206
  Receipt Date: 20090127
  Transmission Date: 20090719
  Serious: Yes (Hospitalization)
  Sender: FDA-Public Use
  Company Number: IN-ROCHE-611033

PATIENT
  Sex: Male
  Weight: 63 kg

DRUGS (4)
  1. METHOXY POLYETHYLENE GLYCOL-EPOETIN BETA [Suspect]
     Dosage: LAST DOSE PRIOR TO SAE 10 DECEMBER 2008.
     Route: 042
     Dates: start: 20081027
  2. EUROPAIN [Concomitant]
     Dosage: TTD REPORTED AS 0.5
  3. MINIPRESS [Concomitant]
     Dosage: DRUG NAME: MINIPRESS XL.
  4. SUS-PHRINE [Concomitant]
     Dosage: DRUG NAME: SUPRADYN.

REACTIONS (1)
  - PROCEDURAL HYPOTENSION [None]
